FAERS Safety Report 18887200 (Version 2)
Quarter: 2021Q1

REPORT INFORMATION
  Report Type: Spontaneous
  Country: US (occurrence: US)
  Receive Date: 20210212
  Receipt Date: 20210304
  Transmission Date: 20210420
  Serious: No
  Sender: FDA-Public Use
  Company Number: US-TAKEDA-2021TUS007592

PATIENT
  Sex: Female
  Weight: 63 kg

DRUGS (22)
  1. GAMMAGARD LIQUID [Suspect]
     Active Substance: HUMAN IMMUNOGLOBULIN G
     Indication: IMMUNODEFICIENCY COMMON VARIABLE
     Dosage: 70 GRAM, Q4WEEKS
     Route: 042
     Dates: start: 20190703
  2. LIDOCAINE. [Concomitant]
     Active Substance: LIDOCAINE
  3. HYDROXYCHLOROQUINE [Concomitant]
     Active Substance: HYDROXYCHLOROQUINE
  4. SIMVASTATIN. [Concomitant]
     Active Substance: SIMVASTATIN
  5. DIPHENHYDRAMINE. [Concomitant]
     Active Substance: DIPHENHYDRAMINE
  6. TUMS ANTACID [Concomitant]
  7. EPINEPHRINE. [Concomitant]
     Active Substance: EPINEPHRINE
  8. TAMIFLU [Concomitant]
     Active Substance: OSELTAMIVIR PHOSPHATE
  9. ACETAMINOPHEN. [Concomitant]
     Active Substance: ACETAMINOPHEN
  10. PREDNISONE. [Concomitant]
     Active Substance: PREDNISONE
  11. SODIUM CHLORIDE. [Concomitant]
     Active Substance: SODIUM CHLORIDE
  12. ACETAMINOPHEN;OXYCODONE HYDROCHLORIDE [Concomitant]
     Active Substance: ACETAMINOPHEN\OXYCODONE HYDROCHLORIDE
  13. AUGMENTINE [AMOXICILLIN;CLAVULANIC ACID] [Concomitant]
     Active Substance: AMOXICILLIN\CLAVULANIC ACID
  14. LEVOTHYROXINE. [Concomitant]
     Active Substance: LEVOTHYROXINE
  15. MAGNESIUM [Concomitant]
     Active Substance: MAGNESIUM
  16. REFRESH CELLUVISC [Concomitant]
     Active Substance: CARBOXYMETHYLCELLULOSE SODIUM
  17. DULCOLAX (BISACODYL) [Concomitant]
     Active Substance: BISACODYL
  18. FENTANYL. [Concomitant]
     Active Substance: FENTANYL
  19. HIBICLENS [Concomitant]
     Active Substance: CHLORHEXIDINE GLUCONATE
  20. AUGMENTIN [Concomitant]
     Active Substance: AMOXICILLIN\CLAVULANATE POTASSIUM
  21. VITAMINS NOS [Concomitant]
     Active Substance: VITAMINS
  22. CALCIUM [Concomitant]
     Active Substance: CALCIUM

REACTIONS (2)
  - Sinusitis [Unknown]
  - Urinary tract infection [Unknown]
